FAERS Safety Report 18605678 (Version 1)
Quarter: 2020Q4

REPORT INFORMATION
  Report Type: Spontaneous
  Country: GH (occurrence: GH)
  Receive Date: 20201211
  Receipt Date: 20201211
  Transmission Date: 20210114
  Serious: Yes (Other)
  Sender: FDA-Public Use
  Company Number: GH-PFIZER INC-2020489184

PATIENT
  Age: 26 Year
  Sex: Female

DRUGS (1)
  1. ARTHROTEC [Suspect]
     Active Substance: DICLOFENAC SODIUM\MISOPROSTOL
     Dosage: 75 MG, 2X/DAY

REACTIONS (1)
  - Vaginal haemorrhage [Recovered/Resolved]
